FAERS Safety Report 15676339 (Version 4)
Quarter: 2021Q1

REPORT INFORMATION
  Report Type: Report from Study
  Country: IE (occurrence: IE)
  Receive Date: 20181130
  Receipt Date: 20210114
  Transmission Date: 20210419
  Serious: Yes (Other)
  Sender: FDA-Public Use
  Company Number: IE-JNJFOC-20181136154

PATIENT
  Age: 47 Year
  Sex: Male
  Weight: 105 kg

DRUGS (2)
  1. STELARA [Suspect]
     Active Substance: USTEKINUMAB
     Indication: PSORIATIC ARTHROPATHY
     Route: 058
     Dates: start: 20180517
  2. STELARA [Suspect]
     Active Substance: USTEKINUMAB
     Indication: PSORIASIS
     Route: 058
     Dates: start: 20190511

REACTIONS (5)
  - Kidney infection [Not Recovered/Not Resolved]
  - Skin disorder [Recovered/Resolved]
  - Prostatitis [Recovered/Resolved]
  - Prostate infection [Not Recovered/Not Resolved]
  - Orchitis [Not Recovered/Not Resolved]

NARRATIVE: CASE EVENT DATE: 2018
